FAERS Safety Report 11395143 (Version 2)
Quarter: 2015Q3

REPORT INFORMATION
  Report Type: Report from Study
  Country: CA (occurrence: CA)
  Receive Date: 20150819
  Receipt Date: 20150925
  Transmission Date: 20151125
  Serious: Yes (Hospitalization)
  Sender: FDA-Public Use
  Company Number: CA-TAKEDA-2015TUS010854

PATIENT
  Age: 25 Year
  Sex: Female
  Weight: 46.26 kg

DRUGS (2)
  1. MEZAVANT [Concomitant]
     Active Substance: MESALAMINE
     Dosage: UNK, QD
  2. VEDOLIZUMAB [Suspect]
     Active Substance: VEDOLIZUMAB
     Indication: COLITIS ULCERATIVE
     Dosage: 300 MG, UNK
     Route: 042
     Dates: start: 20150710, end: 20150723

REACTIONS (2)
  - Clostridium difficile infection [Recovered/Resolved]
  - Colitis ulcerative [Recovered/Resolved]

NARRATIVE: CASE EVENT DATE: 20150723
